FAERS Safety Report 13778631 (Version 4)
Quarter: 2017Q4

REPORT INFORMATION
  Report Type: Spontaneous
  Country: JP (occurrence: JP)
  Receive Date: 20170721
  Receipt Date: 20171120
  Transmission Date: 20180320
  Serious: Yes (Hospitalization, Other)
  Sender: FDA-Public Use
  Company Number: JP-SUNOVION-2017SUN003251

PATIENT
  Age: 88 Year
  Sex: Female

DRUGS (8)
  1. ROZEREM [Concomitant]
     Active Substance: RAMELTEON
     Dosage: 1 DF, UNK
     Route: 048
  2. ROZEREM [Concomitant]
     Active Substance: RAMELTEON
     Dosage: 1 DF, UNK
     Route: 048
  3. TRIAZOLAM. [Concomitant]
     Active Substance: TRIAZOLAM
     Route: 048
  4. TRIAZOLAM. [Concomitant]
     Active Substance: TRIAZOLAM
     Dosage: 1 DF, UNK
     Route: 048
  5. LUNESTA [Suspect]
     Active Substance: ESZOPICLONE
     Indication: INSOMNIA
     Dosage: WHEN SLEEPLESSNESS OCCURRED
     Route: 048
     Dates: start: 20160801, end: 20170110
  6. TRIAZOLAM. [Concomitant]
     Active Substance: TRIAZOLAM
     Dosage: 1 DF @ HS
     Route: 048
     Dates: start: 20160801
  7. ROZEREM [Concomitant]
     Active Substance: RAMELTEON
     Dosage: UNKNOWN
  8. ROZEREM [Concomitant]
     Active Substance: RAMELTEON
     Dosage: 1 DF AT HS
     Route: 048
     Dates: start: 20160720

REACTIONS (5)
  - Restlessness [Recovering/Resolving]
  - Fall [Unknown]
  - Contusion [Recovered/Resolved]
  - Femoral neck fracture [Unknown]
  - Delirium [Recovering/Resolving]

NARRATIVE: CASE EVENT DATE: 20161211
